FAERS Safety Report 9247626 (Version 1)
Quarter: 2013Q2

REPORT INFORMATION
  Report Type: Spontaneous
  Country: CZ (occurrence: CZ)
  Receive Date: 20130423
  Receipt Date: 20130423
  Transmission Date: 20140414
  Serious: Yes (Other)
  Sender: FDA-Public Use
  Company Number: PHHY2013CZ038674

PATIENT
  Sex: Female

DRUGS (3)
  1. EVEROLIMUS [Suspect]
     Indication: BREAST CANCER
  2. EVEROLIMUS [Suspect]
     Dosage: 5 MG, UNK
     Route: 048
  3. EXEMESTANE [Suspect]

REACTIONS (7)
  - Gastric disorder [Recovered/Resolved]
  - Gastritis erosive [Recovered/Resolved]
  - Aphthous stomatitis [Recovered/Resolved]
  - Mucosal haemorrhage [Recovered/Resolved]
  - Breast cancer metastatic [Unknown]
  - Bone pain [Unknown]
  - Anaemia [Recovered/Resolved]
